FAERS Safety Report 10920261 (Version 1)
Quarter: 2015Q1

REPORT INFORMATION
  Report Type: Spontaneous
  Country: US (occurrence: None)
  Receive Date: 20150313
  Receipt Date: 20150313
  Transmission Date: 20150721
  Serious: Yes (Other)
  Sender: FDA-Public Use
  Company Number: None

PATIENT
  Age: 42 Year

DRUGS (3)
  1. RITUXAN [Suspect]
     Active Substance: RITUXIMAB
  2. LISINOPRIL. [Concomitant]
     Active Substance: LISINOPRIL
  3. PREDNISONE. [Concomitant]
     Active Substance: PREDNISONE

REACTIONS (6)
  - Feeling hot [None]
  - Hypoaesthesia [None]
  - Paraesthesia [None]
  - Muscle twitching [None]
  - Blepharospasm [None]
  - Anxiety [None]

NARRATIVE: CASE EVENT DATE: 20140215
